FAERS Safety Report 6961622-7 (Version None)
Quarter: 2010Q3

REPORT INFORMATION
  Report Type: 
  Country: None (occurrence: None)
  Receive Date: 20100901
  Receipt Date: 20100730
  Transmission Date: 20110219
  Serious: No
  Sender: FDA-Public Use
  Company Number: US-PFIZER INC-2010096962

PATIENT
  Sex: Male
  Weight: 10.431 kg

DRUGS (11)
  1. GENOTROPIN [Suspect]
     Indication: GROWTH RETARDATION
     Dosage: 0.5 MG, 1X/DAY
     Dates: start: 20100725
  2. PREDNISOLONE [Concomitant]
     Dosage: UNK
  3. PERIACTIN [Concomitant]
     Dosage: UNK
  4. VORICONAZOLE [Concomitant]
     Dosage: UNK
  5. ZANTAC [Concomitant]
     Dosage: UNK
  6. CALCITRIOL [Concomitant]
     Dosage: UNK
  7. PULMICORT [Concomitant]
     Dosage: UNK
  8. XOPENEX [Concomitant]
     Dosage: UNK
  9. QVAR 40 [Concomitant]
     Dosage: UNK
  10. TOBRAMYCIN [Concomitant]
     Dosage: UNK
  11. TPN [Concomitant]
     Dosage: UNK

REACTIONS (2)
  - INJECTION SITE HAEMATOMA [None]
  - INJECTION SITE HAEMORRHAGE [None]
